FAERS Safety Report 9367642 (Version 1)
Quarter: 2013Q2

REPORT INFORMATION
  Report Type: Report from Study
  Country: US (occurrence: US)
  Receive Date: 20130625
  Receipt Date: 20130625
  Transmission Date: 20140414
  Serious: Yes (Hospitalization)
  Sender: FDA-Public Use
  Company Number: US-US-EMD SERONO, INC.-7219876

PATIENT
  Sex: Female

DRUGS (1)
  1. REBIF [Suspect]
     Indication: MULTIPLE SCLEROSIS
     Route: 058
     Dates: start: 20071203

REACTIONS (4)
  - Diverticulitis [Unknown]
  - Herpes zoster [Unknown]
  - Injection site atrophy [Not Recovered/Not Resolved]
  - Chills [Not Recovered/Not Resolved]
